FAERS Safety Report 8232543-7 (Version None)
Quarter: 2012Q1

REPORT INFORMATION
  Report Type: 
  Country: None (occurrence: None)
  Receive Date: 20120323
  Receipt Date: 20120320
  Transmission Date: 20120608
  Serious: Yes (Life-Threatening)
  Sender: FDA-Public Use
  Company Number: DE-B.I. PHARMACEUTICALS,INC./RIDGEFIELD-2012-DE-00817DE

PATIENT
  Sex: Male
  Weight: 54.5 kg

DRUGS (4)
  1. PRADAXA [Suspect]
     Indication: ATRIAL FIBRILLATION
     Dosage: 220 MG
     Dates: start: 20120211, end: 20120229
  2. BISOPROLOL FUMARATE [Concomitant]
     Indication: ATRIAL FIBRILLATION
     Dosage: 5 MG
  3. NEXIUM [Concomitant]
     Indication: GASTRITIS
     Dosage: 40 MG
  4. PREDNISOLONE [Concomitant]
     Indication: POLYMYALGIA RHEUMATICA
     Dosage: 5 MG

REACTIONS (2)
  - COAGULATION TEST ABNORMAL [None]
  - LOWER GASTROINTESTINAL HAEMORRHAGE [None]
